FAERS Safety Report 16709222 (Version 1)
Quarter: 2019Q3

REPORT INFORMATION
  Report Type: Spontaneous
  Country: FR (occurrence: FR)
  Receive Date: 20190816
  Receipt Date: 20190816
  Transmission Date: 20191004
  Serious: Yes (Hospitalization)
  Sender: FDA-Public Use
  Company Number: FR-ZYDUS-039742

PATIENT
  Age: 85 Year
  Sex: Female
  Weight: 49.9 kg

DRUGS (12)
  1. KARDEGIC [Concomitant]
     Active Substance: ASPIRIN DL-LYSINE
  2. LASILIX SPECIAL [Concomitant]
     Active Substance: FUROSEMIDE
  3. CALCIDOSE VITAMINE D [Concomitant]
     Active Substance: CALCIUM\CHOLECALCIFEROL
  4. SINEMET LP [Concomitant]
     Active Substance: CARBIDOPA\LEVODOPA
  5. TIORFAN [Concomitant]
     Active Substance: RACECADOTRIL
  6. SERESTA [Concomitant]
     Active Substance: OXAZEPAM
  7. ATACAND [Suspect]
     Active Substance: CANDESARTAN CILEXETIL
     Indication: HYPERTENSION
     Route: 048
     Dates: start: 20160716, end: 20160810
  8. CIPROFLOXACIN. [Concomitant]
     Active Substance: CIPROFLOXACIN
  9. ISOPHANE INSULIN [Concomitant]
     Active Substance: INSULIN NOS
  10. LOPERAMIDE [Concomitant]
     Active Substance: LOPERAMIDE
  11. TELMISARTAN. [Suspect]
     Active Substance: TELMISARTAN
     Indication: HYPERTENSION
     Route: 048
     Dates: start: 20160420, end: 20160715
  12. DIFFU K [Concomitant]
     Active Substance: POTASSIUM CHLORIDE

REACTIONS (4)
  - Renal failure [Recovered/Resolved]
  - Weight decreased [Not Recovered/Not Resolved]
  - Hypokalaemia [Recovered/Resolved]
  - Diarrhoea [Recovered/Resolved]

NARRATIVE: CASE EVENT DATE: 20160614
